FAERS Safety Report 6264211-5 (Version None)
Quarter: 2009Q3

REPORT INFORMATION
  Report Type: 
  Country: None (occurrence: None)
  Receive Date: 20090710
  Receipt Date: 20090706
  Transmission Date: 20100115
  Serious: Yes (Other)
  Sender: FDA-Public Use
  Company Number: PT-ABBOTT-09P-130-0577226-00

PATIENT
  Sex: Female
  Weight: 75 kg

DRUGS (7)
  1. HUMIRA [Suspect]
     Indication: ANKYLOSING SPONDYLITIS
     Route: 058
     Dates: start: 20081112
  2. HUMIRA [Suspect]
     Route: 058
     Dates: end: 20090519
  3. SALAZOPIRINA [Concomitant]
     Indication: ANKYLOSING SPONDYLITIS
     Dosage: 1 GASTRO-RESISTANT TABLET ONCE DAILY
     Dates: start: 20000913
  4. METICORTEN [Concomitant]
     Indication: ANKYLOSING SPONDYLITIS
     Dates: start: 20080109
  5. DIOVAN HCT [Concomitant]
     Indication: HYPERTENSION
     Dates: start: 20060101
  6. RANTUDIL [Concomitant]
     Indication: ANKYLOSING SPONDYLITIS
     Dates: start: 19990101
  7. PANTOPRAZOLE SODIUM [Concomitant]
     Indication: PROPHYLAXIS
     Dates: start: 20050505

REACTIONS (2)
  - ECZEMA [None]
  - PRURITUS [None]
